FAERS Safety Report 15985830 (Version 1)
Quarter: 2019Q1

REPORT INFORMATION
  Report Type: Spontaneous
  Country: JP (occurrence: JP)
  Receive Date: 20190220
  Receipt Date: 20190220
  Transmission Date: 20190418
  Serious: No
  Sender: FDA-Public Use
  Company Number: JP-ALLERGAN-1906818US

PATIENT
  Age: 60 Year
  Sex: Male

DRUGS (3)
  1. ASENAPINE MALEATE - BP [Suspect]
     Active Substance: ASENAPINE MALEATE
     Indication: ANXIETY
  2. ASENAPINE MALEATE - BP [Suspect]
     Active Substance: ASENAPINE MALEATE
     Indication: INSOMNIA
     Dosage: 5 MG, QD
     Route: 060
     Dates: start: 20190204, end: 20190212
  3. SERENACE [Suspect]
     Active Substance: HALOPERIDOL
     Indication: PRODUCT USED FOR UNKNOWN INDICATION
     Route: 065

REACTIONS (3)
  - Inappropriate schedule of product administration [Unknown]
  - Rash [Unknown]
  - Off label use [Unknown]
